FAERS Safety Report 16403886 (Version 1)
Quarter: 2019Q3

REPORT INFORMATION
  Report Type: Spontaneous
  Country: US (occurrence: US)
  Receive Date: 20190606
  Receipt Date: 20190606
  Transmission Date: 20191004
  Serious: Yes (Hospitalization)
  Sender: FDA-Public Use
  Company Number: None

PATIENT
  Age: 37 Year
  Sex: Female

DRUGS (10)
  1. LANTUS [Concomitant]
     Active Substance: INSULIN GLARGINE
  2. LINZESS [Concomitant]
     Active Substance: LINACLOTIDE
  3. BYDUREON [Concomitant]
     Active Substance: EXENATIDE
  4. LASIX [Concomitant]
     Active Substance: FUROSEMIDE
  5. LOSARTAN/HCT [Concomitant]
     Active Substance: HYDROCHLOROTHIAZIDE\LOSARTAN POTASSIUM
  6. DULOXETINE. [Concomitant]
     Active Substance: DULOXETINE
  7. ENBREL [Suspect]
     Active Substance: ETANERCEPT
     Dosage: ?          OTHER FREQUENCY:EVERY WEEK;?
     Route: 058
     Dates: start: 20190208
  8. ATORVASTATIN [Concomitant]
     Active Substance: ATORVASTATIN
  9. GABAPENTIN. [Concomitant]
     Active Substance: GABAPENTIN
  10. NOVOLOG [Concomitant]
     Active Substance: INSULIN ASPART

REACTIONS (2)
  - Therapy change [None]
  - Ill-defined disorder [None]

NARRATIVE: CASE EVENT DATE: 20190605
